FAERS Safety Report 9459144 (Version 1)
Quarter: 2013Q3

REPORT INFORMATION
  Report Type: Spontaneous
  Country: US (occurrence: US)
  Receive Date: 20130814
  Receipt Date: 20130814
  Transmission Date: 20140515
  Serious: Yes (Other)
  Sender: FDA-Public Use
  Company Number: US-CELGENEUS-163-20785-13081401

PATIENT
  Sex: Male

DRUGS (2)
  1. THALOMID [Suspect]
     Indication: PLASMA CELL MYELOMA
     Dosage: 200 MILLIGRAM
     Route: 048
     Dates: start: 201307
  2. THALOMID [Suspect]
     Dosage: 100 MILLIGRAM
     Route: 048
     Dates: start: 201308

REACTIONS (4)
  - Visual field defect [Unknown]
  - Dizziness [Unknown]
  - Constipation [Unknown]
  - Paraesthesia [Unknown]
